FAERS Safety Report 4402187-3 (Version None)
Quarter: 2004Q3

REPORT INFORMATION
  Report Type: 
  Country: None (occurrence: None)
  Receive Date: 20040714
  Receipt Date: 20040702
  Transmission Date: 20050211
  Serious: Yes (Hospitalization)
  Sender: FDA-Public Use
  Company Number: 163-20785-04070143

PATIENT
  Age: 52 Year
  Sex: Male

DRUGS (1)
  1. THALOMID [Suspect]
     Indication: DRUG USE FOR UNKNOWN INDICATION
     Dosage: QD, ORAL
     Route: 048
     Dates: end: 20040504

REACTIONS (2)
  - ENCEPHALOPATHY [None]
  - HEPATIC FAILURE [None]
